FAERS Safety Report 7418858 (Version 4)
Quarter: 2013Q2

REPORT INFORMATION
  Report Type: Report from Study
  Country: US (occurrence: US)
  Receive Date: 20100614
  Receipt Date: 20130627
  Transmission Date: 20140414
  Serious: Yes (Death, Hospitalization)
  Sender: FDA-Public Use
  Company Number: US-BRISTOL-MYERS SQUIBB COMPANY-15141740

PATIENT
  Age: 79 Year
  Sex: Male
  Weight: 83.4 kg

DRUGS (4)
  1. ERBITUX [Suspect]
     Indication: OESOPHAGEAL ADENOCARCINOMA
     Dosage: DELAYED BY 1 DAY ON 5/11/10 AGAIN ON 5/25/10 AND GIVEN ON 6/4/10. LAST ADMIN DOSE 517.5MG ON 02JUN10
     Route: 042
     Dates: end: 20100604
  2. CISPLATIN [Suspect]
     Indication: OESOPHAGEAL ADENOCARCINOMA
     Dosage: HELD ON 5/11/10 RESTARTED ON5/18/10.DELAYED ON 5/25/10 RESTARTED ON 6/4/10.LAST DOSE 31.05MG 2JUN10
     Route: 042
     Dates: end: 20100604
  3. TAXOL [Suspect]
     Indication: OESOPHAGEAL ADENOCARCINOMA
     Dosage: HELD ON 5/11/10.RESUMED ON 5/18/10.DELAYED ON 5/25 THEN REDUCED 6/4/10.DOSE62.1MG.LASTDOSEON02JUN10
     Route: 042
     Dates: end: 20100604
  4. COUMADIN [Suspect]
     Indication: CEREBROVASCULAR ACCIDENT

REACTIONS (13)
  - Death [Fatal]
  - Muscular weakness [Not Recovered/Not Resolved]
  - Hypernatraemia [Recovered/Resolved]
  - Rectal haemorrhage [Not Recovered/Not Resolved]
  - Diarrhoea [Recovered/Resolved]
  - Oesophagitis [Recovered/Resolved]
  - White blood cell count decreased [Recovered/Resolved]
  - Platelet count decreased [Not Recovered/Not Resolved]
  - Pyrexia [Unknown]
  - Chills [Unknown]
  - Fatigue [Unknown]
  - Oropharyngeal pain [Unknown]
  - Dehydration [Unknown]
